FAERS Safety Report 10960951 (Version 1)
Quarter: 2015Q1

REPORT INFORMATION
  Report Type: Spontaneous
  Country: US (occurrence: None)
  Receive Date: 20150326
  Receipt Date: 20150326
  Transmission Date: 20150721
  Serious: Yes (Life-Threatening, Hospitalization, Disabling, Other)
  Sender: FDA-Public Use
  Company Number: None

PATIENT
  Age: 63 Year
  Sex: Male
  Weight: 62.14 kg

DRUGS (12)
  1. FLUTICASONE PROPIONATE NASAL SPRAY [Concomitant]
     Active Substance: FLUTICASONE PROPIONATE
  2. PREDNISONE. [Suspect]
     Active Substance: PREDNISONE
     Indication: DYSPNOEA
     Dosage: 4 DAILY
     Route: 048
     Dates: start: 20150217, end: 20150219
  3. ATORVASTATIN [Concomitant]
     Active Substance: ATORVASTATIN
  4. FUNGOID 2% TINCTURE [Concomitant]
  5. PREDNISONE. [Suspect]
     Active Substance: PREDNISONE
     Indication: CHRONIC OBSTRUCTIVE PULMONARY DISEASE
     Dosage: 4 DAILY
     Route: 048
     Dates: start: 20150217, end: 20150219
  6. LOSARTAN POTASSIUM. [Concomitant]
     Active Substance: LOSARTAN POTASSIUM
  7. HYDROCHLOROTHIAZIDE. [Concomitant]
     Active Substance: HYDROCHLOROTHIAZIDE
  8. BENZONATATE. [Concomitant]
     Active Substance: BENZONATATE
  9. AMITRIPTYLINE [Concomitant]
     Active Substance: AMITRIPTYLINE
  10. SPIRIVA [Concomitant]
     Active Substance: TIOTROPIUM BROMIDE MONOHYDRATE
  11. TAB-A-VITE [Concomitant]
  12. ADVAIR DISCUS 250/50 [Concomitant]

REACTIONS (2)
  - Head injury [None]
  - Respiratory arrest [None]

NARRATIVE: CASE EVENT DATE: 20150217
